FAERS Safety Report 21967555 (Version 7)
Quarter: 2025Q4

REPORT INFORMATION
  Report Type: Spontaneous
  Country: US (occurrence: US)
  Receive Date: 20230208
  Receipt Date: 20251120
  Transmission Date: 20260118
  Serious: Yes (Other)
  Sender: PFIZER
  Company Number: US-PFIZER INC-PV202300024108

PATIENT
  Age: 35 Year
  Sex: Female

DRUGS (7)
  1. XELJANZ XR [Suspect]
     Active Substance: TOFACITINIB CITRATE
     Indication: Rheumatoid arthritis
     Dosage: 11 MG, 1X/DAY
     Route: 048
     Dates: start: 20220901
  2. XELJANZ XR [Suspect]
     Active Substance: TOFACITINIB CITRATE
     Dosage: 11 MG, 1X/DAY
     Dates: start: 20220912
  3. XELJANZ XR [Suspect]
     Active Substance: TOFACITINIB CITRATE
     Dosage: 11 MG, 1X/DAY
     Route: 048
  4. XELJANZ XR [Suspect]
     Active Substance: TOFACITINIB CITRATE
     Dosage: 11 MG, 1X/DAY
     Route: 048
     Dates: end: 20240327
  5. XELJANZ XR [Suspect]
     Active Substance: TOFACITINIB CITRATE
     Dosage: 11 MG, 1X/DAY
     Route: 048
     Dates: start: 2024
  6. XELJANZ XR [Suspect]
     Active Substance: TOFACITINIB CITRATE
     Dosage: 11 MG, DAILY
     Route: 048
  7. XELJANZ XR [Suspect]
     Active Substance: TOFACITINIB CITRATE
     Dosage: 11 MG, 1X/DAY
     Route: 048

REACTIONS (16)
  - Systemic lupus erythematosus [Unknown]
  - Oesophageal candidiasis [Not Recovered/Not Resolved]
  - Fungal oesophagitis [Not Recovered/Not Resolved]
  - Neuropathy peripheral [Unknown]
  - Product dose omission in error [Unknown]
  - Product dose omission issue [Unknown]
  - Blood calcium abnormal [Unknown]
  - Migraine [Unknown]
  - Dyspepsia [Unknown]
  - Pain [Not Recovered/Not Resolved]
  - Asthma [Unknown]
  - Musculoskeletal stiffness [Recovering/Resolving]
  - Joint range of motion decreased [Recovering/Resolving]
  - Depression [Not Recovered/Not Resolved]
  - Neuralgia [Unknown]
  - Condition aggravated [Unknown]

NARRATIVE: CASE EVENT DATE: 20251113
